FAERS Safety Report 4513406-7 (Version None)
Quarter: 2004Q4

REPORT INFORMATION
  Report Type: 
  Country: None (occurrence: None)
  Receive Date: 20041130
  Receipt Date: 20040916
  Transmission Date: 20050328
  Serious: Yes (Hospitalization)
  Sender: FDA-Public Use
  Company Number: US-BRISTOL-MYERS SQUIBB COMPANY-12704854

PATIENT
  Age: 62 Year
  Sex: Female
  Weight: 28 kg

DRUGS (2)
  1. ERBITUX [Suspect]
     Indication: COLON CANCER
     Route: 042
  2. IRINOTECAN [Suspect]

REACTIONS (2)
  - DIARRHOEA [None]
  - RASH [None]
